FAERS Safety Report 6665430-6 (Version None)
Quarter: 2010Q1

REPORT INFORMATION
  Report Type: 
  Country: None (occurrence: None)
  Receive Date: 20100323
  Receipt Date: 20100204
  Transmission Date: 20100710
  Serious: Yes (Hospitalization)
  Sender: FDA-Public Use
  Company Number: 100208-0000158

PATIENT

DRUGS (1)
  1. SABRIL [Suspect]
     Indication: CONVULSION

REACTIONS (1)
  - CONVULSION [None]
